FAERS Safety Report 5895391-9 (Version None)
Quarter: 2008Q3

REPORT INFORMATION
  Report Type: 
  Country: None (occurrence: None)
  Receive Date: 20080923
  Receipt Date: 20080923
  Transmission Date: 20090109
  Serious: Yes (Hospitalization)
  Sender: FDA-Public Use
  Company Number: None

PATIENT
  Age: 25 Year
  Sex: Male
  Weight: 86.1834 kg

DRUGS (1)
  1. PREDNISONE [Suspect]
     Indication: MUSCULOSKELETAL PAIN
     Dosage: 20 MG 3X DAILY PO
     Route: 048
     Dates: start: 20080920, end: 20080920

REACTIONS (2)
  - HEART RATE INCREASED [None]
  - HEART RATE IRREGULAR [None]
